FAERS Safety Report 4736571-5 (Version None)
Quarter: 2005Q3

REPORT INFORMATION
  Report Type: 
  Country: None (occurrence: None)
  Receive Date: 20050802
  Receipt Date: 20050720
  Transmission Date: 20060218
  Serious: Yes (Death)
  Sender: FDA-Public Use
  Company Number: 02100-JPN-05-0341

PATIENT
  Age: 55 Year
  Sex: Male

DRUGS (4)
  1. CILOSTAZOL [Suspect]
     Indication: CEREBROVASCULAR ACCIDENT
     Dosage: 200 MG
     Route: 048
     Dates: start: 20050622, end: 20050626
  2. ASPIRIN [Concomitant]
  3. VITAMIN B COMPLEX CAP [Concomitant]
  4. NIFEDIPINE [Concomitant]

REACTIONS (1)
  - VENTRICULAR TACHYCARDIA [None]
